FAERS Safety Report 17195524 (Version 2)
Quarter: 2020Q1

REPORT INFORMATION
  Report Type: Spontaneous
  Country: CZ (occurrence: CZ)
  Receive Date: 20191224
  Receipt Date: 20200129
  Transmission Date: 20200409
  Serious: Yes (Hospitalization)
  Sender: FDA-Public Use
  Company Number: CZ-ACCORD-167362

PATIENT
  Age: 88 Year
  Sex: Male
  Weight: 73 kg

DRUGS (13)
  1. FUROSEMIDE. [Suspect]
     Active Substance: FUROSEMIDE
     Dosage: DOSAGE : 1-0-0
  2. CIPROFLOXACIN. [Suspect]
     Active Substance: CIPROFLOXACIN
     Dosage: DOSAGE: 0-1-0
  3. PROMETHAZINE [Suspect]
     Active Substance: PROMETHAZINE HYDROCHLORIDE
     Dosage: DOSAGE : 0-0-0-1
  4. CLOPIDOGREL [Concomitant]
     Active Substance: CLOPIDOGREL BISULFATE
     Dosage: DOSAGE: 1-0-0
  5. CLARITHROMYCIN. [Concomitant]
     Active Substance: CLARITHROMYCIN
     Dosage: DOSAGE : 0-0-1
  6. BISOPROLOL [Suspect]
     Active Substance: BISOPROLOL
     Dosage: DOSAGE : 1-0-0
  7. HYDROCHLOROTHIAZIDE. [Suspect]
     Active Substance: HYDROCHLOROTHIAZIDE
     Dosage: DOSAGE : 0.5-0-0
  8. CHOLINE THEOPHYLLINATE/THEOPHYLLINE/THEOPHYLLINE CALCIUM AMINOACET/THEOPHYLLINE MONOETHANOLAMINE/THE [Suspect]
     Active Substance: OXTRIPHYLLINE
     Dosage: DOSAGE : 1-0-1
  9. POTASSIUM [Concomitant]
     Active Substance: POTASSIUM
     Dosage: DOSAGE: 0-1-0
  10. TIAPRIDE [Suspect]
     Active Substance: TIAPRIDE
     Dosage: DOSAGE : 2-2-2-2
  11. ALLOPURINOL. [Concomitant]
     Active Substance: ALLOPURINOL
     Dosage: DOSAGE: 0-1-0
  12. LEVOTHYROXINE. [Concomitant]
     Active Substance: LEVOTHYROXINE
     Dosage: DOSAGE : 1-0-0 (3X WEEKLY)
  13. SACCHAROMYCES BOULARDII [Concomitant]
     Active Substance: SACCHAROMYCES CEREVISIAE

REACTIONS (4)
  - Fall [Unknown]
  - Head injury [Unknown]
  - Intentional overdose [Unknown]
  - Balance disorder [Unknown]
